FAERS Safety Report 20897180 (Version 1)
Quarter: 2022Q2

REPORT INFORMATION
  Report Type: Spontaneous
  Country: CN (occurrence: CN)
  Receive Date: 20220531
  Receipt Date: 20220531
  Transmission Date: 20220721
  Serious: Yes (Other)
  Sender: FDA-Public Use
  Company Number: CN-PFIZER INC-202200767309

PATIENT
  Age: 76 Year
  Sex: Female
  Weight: 60 kg

DRUGS (8)
  1. CELEBREX [Suspect]
     Active Substance: CELECOXIB
     Indication: Osteoporotic fracture
     Dosage: 0.2 G, 2X/DAY
     Route: 048
     Dates: start: 20220420, end: 20220425
  2. CELEBREX [Suspect]
     Active Substance: CELECOXIB
     Indication: Antiinflammatory therapy
  3. CELEBREX [Suspect]
     Active Substance: CELECOXIB
     Indication: Analgesic therapy
  4. HEPARIN SODIUM [Concomitant]
     Active Substance: HEPARIN SODIUM
     Indication: Coagulopathy
     Dosage: 4250 IU, 1X/DAY
     Route: 058
     Dates: start: 20220419, end: 20220429
  5. GAI RUI NING [Concomitant]
     Indication: Osteoporosis
     Dosage: 100 IU, 1X/DAY
     Route: 030
     Dates: start: 20220419, end: 20220429
  6. ALFACALCIDOL [Concomitant]
     Active Substance: ALFACALCIDOL
     Indication: Osteoporosis
     Dosage: 1 UG, 1X/DAY
     Route: 048
     Dates: start: 20220419, end: 20220429
  7. AMLODIPINE [Concomitant]
     Active Substance: AMLODIPINE BESYLATE
     Indication: Hypertension
     Dosage: 1 DF, 1X/DAY
     Route: 048
     Dates: start: 20220420, end: 20220429
  8. METFORMIN HYDROCHLORIDE [Concomitant]
     Active Substance: METFORMIN HYDROCHLORIDE
     Indication: Blood glucose increased
     Dosage: 1 DF, 3X/DAY
     Route: 048
     Dates: start: 20220420, end: 20220429

REACTIONS (2)
  - Hepatic function abnormal [Recovering/Resolving]
  - Intervertebral disc operation [Unknown]

NARRATIVE: CASE EVENT DATE: 20220425
